FAERS Safety Report 14243040 (Version 1)
Quarter: 2017Q4

REPORT INFORMATION
  Report Type: Spontaneous
  Country: SN (occurrence: SN)
  Receive Date: 20171201
  Receipt Date: 20171201
  Transmission Date: 20180321
  Serious: Yes (Death, Other)
  Sender: FDA-Public Use
  Company Number: SN-TOLMAR, INC.-TOLG20170500

PATIENT
  Age: 45 Year
  Sex: Female

DRUGS (2)
  1. CLOBETASOL PROPIONATE. [Suspect]
     Active Substance: CLOBETASOL PROPIONATE
     Indication: SKIN COSMETIC PROCEDURE
     Dosage: OVER WHOLE BODY AND FACE
     Route: 061
  2. HYDROQUINONE. [Suspect]
     Active Substance: HYDROQUINONE
     Indication: SKIN COSMETIC PROCEDURE
     Dosage: OVER WHOLE BODY AND FACE
     Route: 061

REACTIONS (7)
  - Product use in unapproved indication [None]
  - Incorrect drug administration duration [None]
  - Skin atrophy [Unknown]
  - Neoplasm recurrence [Fatal]
  - Metastases to bone [Fatal]
  - Squamous cell carcinoma of skin [Fatal]
  - Neoplasm skin [Fatal]
